FAERS Safety Report 7936806-1 (Version None)
Quarter: 2011Q4

REPORT INFORMATION
  Report Type: 
  Country: None (occurrence: None)
  Receive Date: 20111123
  Receipt Date: 20111114
  Transmission Date: 20120403
  Serious: No
  Sender: FDA-Public Use
  Company Number: US-B.I. PHARMACEUTICALS,INC./RIDGEFIELD-2011-BP-11104BP

PATIENT
  Sex: Female

DRUGS (19)
  1. ATACAND [Concomitant]
     Indication: CARDIAC DISORDER
     Dosage: 4 MG
     Route: 048
  2. ATACAND [Concomitant]
     Indication: CARDIAC FAILURE
  3. OMEPRAZOLE [Concomitant]
     Indication: OESOPHAGEAL DISORDER
  4. DIGOXIN [Concomitant]
     Indication: ATRIAL FIBRILLATION
  5. DEMADOX [Concomitant]
     Indication: CARDIAC FAILURE
  6. ZETIA [Concomitant]
     Indication: BLOOD CHOLESTEROL INCREASED
     Dosage: 10 MG
     Route: 048
  7. VITAMIN D [Concomitant]
     Indication: SUPPLEMENTATION THERAPY
     Route: 048
  8. NORVASC [Concomitant]
     Indication: HYPERTENSION
     Dosage: 10 MG
     Route: 048
  9. DIGOXIN [Concomitant]
     Indication: CARDIAC FAILURE
     Dosage: 0.125 MG
     Route: 048
  10. PRADAXA [Suspect]
     Dosage: 300 MG
     Route: 048
     Dates: start: 20110210, end: 20110601
  11. THYROID TAB [Concomitant]
     Indication: HYPOTHYROIDISM
     Dosage: 60 MCG
     Route: 048
  12. THYROID TAB [Concomitant]
  13. DEMADOX [Concomitant]
     Indication: BLADDER DISORDER
     Dosage: 10 MG
     Route: 048
  14. ASCORBIC ACID [Concomitant]
     Indication: VITAMIN SUPPLEMENTATION
     Route: 048
  15. VITAMIN E [Concomitant]
     Indication: VITAMIN SUPPLEMENTATION
     Dosage: 200 U
     Route: 048
  16. VITAMIN D WITH CALCIUM [Concomitant]
     Indication: OSTEOPOROSIS
     Route: 048
  17. PRADAXA [Suspect]
     Indication: ATRIAL FIBRILLATION
     Dosage: 300 MG
     Route: 048
     Dates: start: 20101201, end: 20110201
  18. BONIVA [Concomitant]
     Indication: OSTEOPOROSIS
     Dosage: 1-MONTHLY
     Route: 048
  19. MAGNESIUM SULFATE [Concomitant]

REACTIONS (14)
  - MUSCLE SPASMS [None]
  - OROPHARYNGEAL PAIN [None]
  - OEDEMA PERIPHERAL [None]
  - FEELING COLD [None]
  - FALL [None]
  - LACRIMATION INCREASED [None]
  - PRURITUS GENERALISED [None]
  - RASH PRURITIC [None]
  - NASOPHARYNGITIS [None]
  - PRURITUS [None]
  - SWELLING [None]
  - URTICARIA [None]
  - RASH MACULAR [None]
  - VISUAL ACUITY REDUCED [None]
